FAERS Safety Report 6015538-3 (Version None)
Quarter: 2008Q4

REPORT INFORMATION
  Report Type: 
  Country: None (occurrence: None)
  Receive Date: 20081222
  Receipt Date: 20081210
  Transmission Date: 20090506
  Serious: Yes (Death, Hospitalization)
  Sender: FDA-Public Use
  Company Number: JP-PFIZER INC-2008097270

PATIENT

DRUGS (12)
  1. TOPOTECIN [Suspect]
     Indication: GASTRIC CANCER
     Dosage: 100 MG,  5/15,5/29
     Route: 042
     Dates: start: 20080515, end: 20080529
  2. TOPOTECIN [Suspect]
     Indication: COLORECTAL CANCER
     Dosage: 85 MG, 6/26,7/10,7/24,8/7,9/4,9/25,10/16
     Route: 042
     Dates: start: 20080626, end: 20081016
  3. RANDA [Suspect]
     Indication: GASTRIC CANCER
     Dosage: 50 MG, INTERMITTENT (1 IN 2-3 WEEKS)
     Route: 042
     Dates: start: 20080515, end: 20080529
  4. RANDA [Suspect]
     Indication: COLORECTAL CANCER
     Dosage: 40 MG, INTERMITTENT (1 IN 3 WEEKS)
     Dates: start: 20080626, end: 20081016
  5. KYTRIL [Concomitant]
     Dates: start: 20080515, end: 20081016
  6. DEXAMETHASONE SODIUM PHOSPHATE [Concomitant]
     Dates: start: 20080515, end: 20081016
  7. SODIUM CHLORIDE [Concomitant]
     Dosage: 2 DF (1 DF, 2 IN 1 D)
     Dates: start: 20080515, end: 20081016
  8. SODIUM CHLORIDE [Concomitant]
     Dosage: 1 DF
     Dates: start: 20080515, end: 20081016
  9. GASTROPYLORE [Concomitant]
     Dates: start: 20070825, end: 20081016
  10. BERIZYM [Concomitant]
     Dates: start: 20070825, end: 20081016
  11. MAGNESIUM OXIDE [Concomitant]
     Dates: start: 20070920, end: 20081016
  12. LOPEMIN [Concomitant]
     Dates: start: 20071016, end: 20081016

REACTIONS (7)
  - BONE MARROW FAILURE [None]
  - CONDITION AGGRAVATED [None]
  - DISSEMINATED INTRAVASCULAR COAGULATION [None]
  - GENERAL PHYSICAL HEALTH DETERIORATION [None]
  - PNEUMONIA [None]
  - PULMONARY ALVEOLAR HAEMORRHAGE [None]
  - RESPIRATORY FAILURE [None]
